FAERS Safety Report 13826267 (Version 4)
Quarter: 2017Q3

REPORT INFORMATION
  Report Type: Report from Study
  Country: KR (occurrence: KR)
  Receive Date: 20170802
  Receipt Date: 20170922
  Transmission Date: 20171127
  Serious: Yes (Other)
  Sender: FDA-Public Use
  Company Number: KR-B.I. PHARMACEUTICALS,INC./RIDGEFIELD-2017-BI-041838

PATIENT
  Age: 82 Year
  Sex: Female
  Weight: 60.4 kg

DRUGS (15)
  1. ALMAGEL-F [Concomitant]
     Indication: GASTRITIS PROPHYLAXIS
     Route: 065
     Dates: start: 20170331, end: 20170413
  2. MEGESTROL [Concomitant]
     Active Substance: MEGESTROL
     Indication: PROPHYLAXIS
     Route: 065
     Dates: start: 20170131, end: 20170310
  3. GILOTRIF [Suspect]
     Active Substance: AFATINIB
     Indication: NON-SMALL CELL LUNG CANCER
     Route: 048
     Dates: start: 20170118, end: 20170125
  4. DIGOXIN. [Concomitant]
     Active Substance: DIGOXIN
     Indication: PERICARDIAL EFFUSION
     Route: 065
     Dates: start: 20170109, end: 20170227
  5. GILOTRIF [Suspect]
     Active Substance: AFATINIB
     Route: 048
     Dates: start: 20170126, end: 20170215
  6. GILOTRIF [Suspect]
     Active Substance: AFATINIB
     Route: 048
     Dates: start: 20170216
  7. LIPITOR [Concomitant]
     Active Substance: ATORVASTATIN CALCIUM
     Indication: HYPERTENSION
     Route: 065
     Dates: start: 20170109, end: 20170227
  8. DILATREND [Concomitant]
     Active Substance: CARVEDILOL
     Indication: HYPERTENSION
     Route: 065
     Dates: start: 20170109, end: 20170227
  9. LANSTON [Concomitant]
     Active Substance: LANSOPRAZOLE
     Indication: GASTRITIS PROPHYLAXIS
     Route: 065
     Dates: start: 20170120
  10. CIMET [Concomitant]
     Indication: GASTRITIS PROPHYLAXIS
     Route: 065
     Dates: start: 20170109, end: 20170227
  11. TWYNSTA [Concomitant]
     Active Substance: AMLODIPINE BESYLATE\TELMISARTAN
     Indication: HYPERTENSION
     Dosage: 1 TAB
     Route: 065
     Dates: start: 20170109, end: 20170227
  12. MEGESTROL [Concomitant]
     Active Substance: MEGESTROL
     Indication: DECREASED APPETITE
     Route: 065
     Dates: start: 20170331, end: 20170413
  13. TORSEMIDE. [Concomitant]
     Active Substance: TORSEMIDE
     Indication: PERICARDIAL EFFUSION
     Route: 065
     Dates: start: 20170109, end: 20170227
  14. CODEINE PHOSPHATE [Concomitant]
     Active Substance: CODEINE PHOSPHATE
     Indication: COUGH
     Route: 065
     Dates: start: 20170112, end: 20170207
  15. PRIVITUSS [Concomitant]
     Indication: COUGH
     Dosage: 3 PACK
     Route: 065
     Dates: start: 20170111, end: 20170204

REACTIONS (7)
  - Diarrhoea [Recovered/Resolved]
  - Pulmonary embolism [Recovered/Resolved]
  - Decreased appetite [Not Recovered/Not Resolved]
  - Dyspepsia [Not Recovered/Not Resolved]
  - Paronychia [Not Recovered/Not Resolved]
  - Dyspepsia [Recovered/Resolved]
  - Oedema [Unknown]

NARRATIVE: CASE EVENT DATE: 201701
